FAERS Safety Report 25754865 (Version 1)
Quarter: 2025Q3

REPORT INFORMATION
  Report Type: Spontaneous
  Country: IN (occurrence: IN)
  Receive Date: 20250903
  Receipt Date: 20250903
  Transmission Date: 20251020
  Serious: Yes (Other)
  Sender: RANBAXY
  Company Number: IN-SUN PHARMACEUTICAL INDUSTRIES LTD-2025R1-525031

PATIENT
  Age: 55 Year
  Sex: Male

DRUGS (1)
  1. METRONIDAZOLE [Suspect]
     Active Substance: METRONIDAZOLE
     Indication: Hepatic amoebiasis
     Dosage: 2 GRAM, DAILY
     Route: 048

REACTIONS (2)
  - Cerebellar ataxia [Recovering/Resolving]
  - Small fibre neuropathy [Recovering/Resolving]
